FAERS Safety Report 5474219-5 (Version None)
Quarter: 2007Q4

REPORT INFORMATION
  Report Type: 
  Country: None (occurrence: None)
  Receive Date: 20071002
  Receipt Date: 20070611
  Transmission Date: 20080405
  Serious: No
  Sender: FDA-Public Use
  Company Number: US-ASTRAZENECA-2007UW13926

PATIENT
  Sex: Female

DRUGS (1)
  1. ARIMIDEX [Suspect]
     Indication: OVARIAN CANCER
     Route: 048
     Dates: start: 20060701, end: 20070529

REACTIONS (8)
  - ARTHRALGIA [None]
  - BLADDER SPASM [None]
  - CARBOHYDRATE ANTIGEN 125 INCREASED [None]
  - CYSTITIS [None]
  - DRUG INEFFECTIVE FOR UNAPPROVED INDICATION [None]
  - GASTROINTESTINAL PAIN [None]
  - PAIN [None]
  - SINUSITIS [None]
